FAERS Safety Report 5800448-4 (Version None)
Quarter: 2008Q3

REPORT INFORMATION
  Report Type: 
  Country: None (occurrence: None)
  Receive Date: 20080702
  Receipt Date: 20080702
  Transmission Date: 20090109
  Serious: Yes (Hospitalization)
  Sender: FDA-Public Use
  Company Number: None

PATIENT
  Age: 54 Year
  Sex: Female
  Weight: 55.3388 kg

DRUGS (1)
  1. CYMBALTA [Suspect]
     Indication: PAIN
     Dosage: TWO DAILY PO
     Route: 048

REACTIONS (1)
  - CONVULSION [None]
